FAERS Safety Report 19985929 (Version 8)
Quarter: 2021Q4

REPORT INFORMATION
  Report Type: Report from Study
  Country: CA (occurrence: CA)
  Receive Date: 20211022
  Receipt Date: 20211217
  Transmission Date: 20220303
  Serious: Yes (Hospitalization, Other)
  Sender: FDA-Public Use
  Company Number: CA-BIOGEN-2021BI01059854

PATIENT
  Sex: Female

DRUGS (6)
  1. TYSABRI [Suspect]
     Active Substance: NATALIZUMAB
     Indication: Multiple sclerosis
     Route: 042
     Dates: start: 20070329, end: 20210920
  2. TYSABRI [Suspect]
     Active Substance: NATALIZUMAB
     Route: 042
     Dates: start: 20070309, end: 20210920
  3. DALFAMPRIDINE [Suspect]
     Active Substance: DALFAMPRIDINE
     Indication: Multiple sclerosis
     Route: 048
     Dates: start: 20120606, end: 20211017
  4. DALFAMPRIDINE [Suspect]
     Active Substance: DALFAMPRIDINE
     Route: 048
     Dates: start: 20120606, end: 202111
  5. LASIX [Suspect]
     Active Substance: FUROSEMIDE
     Indication: Micturition disorder
     Dosage: BID
     Route: 065
     Dates: start: 20211013
  6. LOPRESSOR [Suspect]
     Active Substance: METOPROLOL TARTRATE
     Indication: Hypotension
     Route: 065

REACTIONS (12)
  - Cardiac failure [Not Recovered/Not Resolved]
  - Ejection fraction decreased [Not Recovered/Not Resolved]
  - Cardiac amyloidosis [Not Recovered/Not Resolved]
  - Dyspnoea [Not Recovered/Not Resolved]
  - Blood creatinine increased [Not Recovered/Not Resolved]
  - Blood cholesterol abnormal [Not Recovered/Not Resolved]
  - Functional gastrointestinal disorder [Not Recovered/Not Resolved]
  - Urinary retention [Not Recovered/Not Resolved]
  - Cross sensitivity reaction [Not Recovered/Not Resolved]
  - General physical health deterioration [Unknown]
  - Hypotension [Not Recovered/Not Resolved]
  - Cough [Not Recovered/Not Resolved]
